FAERS Safety Report 4867577-3 (Version None)
Quarter: 2005Q4

REPORT INFORMATION
  Report Type: 
  Country: None (occurrence: None)
  Receive Date: 20051222
  Receipt Date: 20051213
  Transmission Date: 20060501
  Serious: Yes (Other)
  Sender: FDA-Public Use
  Company Number: 2005167429

PATIENT
  Sex: Female

DRUGS (2)
  1. NEOSPORIN [Suspect]
     Dosage: TOPICAL
     Route: 061
     Dates: start: 20051210, end: 20051212
  2. BENADRYL [Suspect]
     Indication: SWELLING FACE
     Dosage: TOPICAL
     Route: 061
     Dates: start: 20051201

REACTIONS (3)
  - BLISTER [None]
  - SWELLING FACE [None]
  - WOUND SECRETION [None]
